FAERS Safety Report 7790270-4 (Version None)
Quarter: 2011Q3

REPORT INFORMATION
  Report Type: 
  Country: None (occurrence: None)
  Receive Date: 20110930
  Receipt Date: 20110923
  Transmission Date: 20111222
  Serious: Yes (Other)
  Sender: FDA-Public Use
  Company Number: PHHY2011GB84766

PATIENT
  Age: 88 Year
  Sex: Female

DRUGS (12)
  1. METOCLOPRAMIDE [Suspect]
     Route: 058
  2. TROSPIUM CHLORIDE [Concomitant]
     Dosage: 60 MG, UNK
     Route: 048
  3. MORPHINE SULFATE [Suspect]
     Route: 058
  4. POLYETHYLENE GLYCOL [Concomitant]
     Route: 048
  5. SIMVASTATIN [Concomitant]
     Dosage: 40 MG, UNK
     Route: 048
  6. CETIRIZINE HCL [Concomitant]
     Dosage: 10 MG, UNK
     Route: 048
  7. LIDOCAINE [Concomitant]
     Dosage: 5 %, UNK
     Route: 048
  8. AMITRIPTYLINE HCL [Concomitant]
     Dosage: 10 MG, UNK
     Route: 048
  9. CIPROFLOXACIN [Suspect]
     Route: 042
  10. METRONIDAZOLE [Suspect]
     Route: 042
  11. VANCOMYCIN [Suspect]
     Route: 042
  12. PROPYLTHIOURACIL [Concomitant]
     Dosage: 50 MG, UNK
     Route: 048

REACTIONS (1)
  - FACE OEDEMA [None]
